FAERS Safety Report 13557811 (Version 1)
Quarter: 2017Q2

REPORT INFORMATION
  Report Type: Spontaneous
  Country: NO (occurrence: NO)
  Receive Date: 20170518
  Receipt Date: 20170518
  Transmission Date: 20170830
  Serious: Yes (Hospitalization, Other)
  Sender: FDA-Public Use
  Company Number: NO-009507513-1607NOR006062

PATIENT
  Age: 46 Year
  Sex: Male

DRUGS (3)
  1. NORCURON [Interacting]
     Active Substance: VECURONIUM BROMIDE
     Indication: MUSCLE RELAXANT THERAPY
     Dosage: UNK
     Route: 065
     Dates: start: 20110202, end: 20110202
  2. ESMERON [Suspect]
     Active Substance: ROCURONIUM BROMIDE
     Indication: MUSCLE RELAXANT THERAPY
     Dosage: UNK
     Dates: start: 20110202, end: 20110202
  3. TUXI [Concomitant]
     Indication: PRODUCTIVE COUGH
     Dosage: UNK
     Dates: start: 2011, end: 2011

REACTIONS (7)
  - Cardiac arrest [Recovered/Resolved]
  - Anaphylactic reaction [Recovered/Resolved]
  - Disturbance in attention [Not Recovered/Not Resolved]
  - Fatigue [Not Recovered/Not Resolved]
  - Daydreaming [Not Recovered/Not Resolved]
  - Memory impairment [Not Recovered/Not Resolved]
  - Drug cross-reactivity [Unknown]

NARRATIVE: CASE EVENT DATE: 20110202
